FAERS Safety Report 6874514-9 (Version None)
Quarter: 2010Q3

REPORT INFORMATION
  Report Type: 
  Country: None (occurrence: None)
  Receive Date: 20100723
  Receipt Date: 20100723
  Transmission Date: 20110219
  Serious: Yes (Hospitalization)
  Sender: FDA-Public Use
  Company Number: None

PATIENT
  Sex: Female
  Weight: 56.6 kg

DRUGS (3)
  1. CARBOPLATIN [Suspect]
     Dosage: 567 MG
     Dates: end: 20100630
  2. TAXOTERE [Suspect]
     Dosage: 116 MG
     Dates: end: 20100630
  3. HERCEPTIN [Suspect]
     Dosage: 113 MG
     Dates: end: 20100714

REACTIONS (1)
  - TOOTH ABSCESS [None]
